FAERS Safety Report 13180370 (Version 1)
Quarter: 2017Q1

REPORT INFORMATION
  Report Type: Report from Study
  Country: BR (occurrence: BR)
  Receive Date: 20170202
  Receipt Date: 20170202
  Transmission Date: 20170428
  Serious: Yes (Hospitalization)
  Sender: FDA-Public Use
  Company Number: PHHY2017BR014676

PATIENT
  Sex: Female

DRUGS (1)
  1. SANDOSTATIN LAR DEPOT [Suspect]
     Active Substance: OCTREOTIDE ACETATE
     Indication: ACROMEGALY
     Dosage: 30 MG, UNK
     Route: 065

REACTIONS (13)
  - Loss of consciousness [Unknown]
  - Dehydration [Unknown]
  - Dyspnoea [Unknown]
  - Malaise [Unknown]
  - Syncope [Unknown]
  - Hepatic failure [Unknown]
  - Renal impairment [Unknown]
  - Dysuria [Unknown]
  - Asthenia [Unknown]
  - Unresponsive to stimuli [Unknown]
  - Memory impairment [Unknown]
  - Condition aggravated [Unknown]
  - Eating disorder [Unknown]
